FAERS Safety Report 17346471 (Version 1)
Quarter: 2020Q1

REPORT INFORMATION
  Report Type: Spontaneous
  Country: US (occurrence: US)
  Receive Date: 20200129
  Receipt Date: 20200129
  Transmission Date: 20200409
  Serious: Yes (Life-Threatening)
  Sender: FDA-Public Use
  Company Number: None

PATIENT
  Sex: Female
  Weight: 81.9 kg

DRUGS (2)
  1. CLONAZEPAM. [Concomitant]
     Active Substance: CLONAZEPAM
  2. CLONAZEPAM. [Suspect]
     Active Substance: CLONAZEPAM
     Route: 048

REACTIONS (2)
  - Seizure [None]
  - Product substitution issue [None]
